FAERS Safety Report 7475075-6 (Version None)
Quarter: 2011Q2

REPORT INFORMATION
  Report Type: 
  Country: None (occurrence: None)
  Receive Date: 20110509
  Receipt Date: 20110509
  Transmission Date: 20111010
  Serious: No
  Sender: FDA-Public Use
  Company Number: None

PATIENT
  Age: 25 Year
  Sex: Female
  Weight: 49.8957 kg

DRUGS (2)
  1. SUCRETS COMPLETE [Suspect]
     Indication: DRY THROAT
     Dosage: ONE Q2H PRN PO
     Route: 048
     Dates: start: 20110506, end: 20110507
  2. SUCRETS COMPLETE [Suspect]
     Indication: OROPHARYNGEAL PAIN
     Dosage: ONE Q2H PRN PO
     Route: 048
     Dates: start: 20110506, end: 20110507

REACTIONS (4)
  - VISION BLURRED [None]
  - DIZZINESS [None]
  - CHEST DISCOMFORT [None]
  - TACHYCARDIA [None]
